FAERS Safety Report 6317437-6 (Version None)
Quarter: 2009Q3

REPORT INFORMATION
  Report Type: 
  Country: None (occurrence: None)
  Receive Date: 20090820
  Receipt Date: 20090820
  Transmission Date: 20100115
  Serious: No
  Sender: FDA-Public Use
  Company Number: None

PATIENT
  Age: 58 Year
  Sex: Female
  Weight: 95.2554 kg

DRUGS (1)
  1. LEVAQUIN [Suspect]
     Indication: SINUSITIS
     Dosage: 500 MG DAILY PO
     Route: 048
     Dates: start: 20090806, end: 20090813

REACTIONS (11)
  - AGEUSIA [None]
  - ARTHRALGIA [None]
  - DIARRHOEA [None]
  - GLOSSODYNIA [None]
  - HEADACHE [None]
  - IRRITABILITY [None]
  - MUSCULOSKELETAL PAIN [None]
  - NAUSEA [None]
  - ORAL PAIN [None]
  - PARANOIA [None]
  - VOMITING [None]
